FAERS Safety Report 6166114-3 (Version None)
Quarter: 2009Q2

REPORT INFORMATION
  Report Type: 
  Country: None (occurrence: None)
  Receive Date: 20090422
  Receipt Date: 20090422
  Transmission Date: 20091009
  Serious: Yes (Death)
  Sender: FDA-Public Use
  Company Number: None

PATIENT
  Age: 79 Year
  Sex: Male

DRUGS (6)
  1. OMEPRAZOLE [Suspect]
     Dosage: ORAL
     Dates: start: 20081114
  2. ACETYLCYSTEINE [Suspect]
     Indication: PULMONARY ARTERIAL HYPERTENSION
     Dosage: 600 MG, ORAL 3 IN 1 DAY
     Route: 048
     Dates: start: 20081114, end: 20081226
  3. ALENDRONATE SODIUM [Suspect]
     Dosage: 70 MG, ORAL 1 IN 1 WEEK
     Route: 048
     Dates: start: 20081114
  4. AZATHIOPRINE [Suspect]
     Indication: PULMONARY ARTERIAL HYPERTENSION
     Dosage: 125 MG, ORAL 1 IN 1 DAY
     Route: 048
     Dates: start: 20081114, end: 20081226
  5. PREDNISOLONE [Suspect]
  6. WARFARIN SODIUM [Concomitant]

REACTIONS (3)
  - NEUTROPENIA [None]
  - SEPSIS [None]
  - TOXIC EPIDERMAL NECROLYSIS [None]
